FAERS Safety Report 10446323 (Version 1)
Quarter: 2014Q3

REPORT INFORMATION
  Report Type: Spontaneous
  Country: US (occurrence: US)
  Receive Date: 20140911
  Receipt Date: 20140911
  Transmission Date: 20150326
  Serious: Yes (Death)
  Sender: FDA-Public Use
  Company Number: US-UNITED THERAPEUTICS-UNT-2014-007160

PATIENT
  Age: 50 Year
  Sex: Male
  Weight: 80.73 kg

DRUGS (1)
  1. TYVASO [Suspect]
     Active Substance: TREPROSTINIL
     Indication: PULMONARY ARTERIAL HYPERTENSION
     Dosage: 18-54 ?G, QID
     Dates: start: 20110309

REACTIONS (1)
  - Death [Fatal]

NARRATIVE: CASE EVENT DATE: 20140904
